FAERS Safety Report 5677288-2 (Version None)
Quarter: 2008Q1

REPORT INFORMATION
  Report Type: 
  Country: None (occurrence: None)
  Receive Date: 20080324
  Receipt Date: 20080311
  Transmission Date: 20080703
  Serious: Yes (Hospitalization)
  Sender: FDA-Public Use
  Company Number: FR-BAUSCH-2008BL001074

PATIENT
  Age: 2 Year
  Sex: Male

DRUGS (2)
  1. CROMOPTIC [Suspect]
     Indication: EYE ALLERGY
     Route: 047
     Dates: start: 20080101, end: 20080101
  2. CROMOPTIC [Suspect]
     Route: 047
     Dates: start: 20080201

REACTIONS (2)
  - GASTROENTERITIS [None]
  - RASH [None]
